FAERS Safety Report 11374361 (Version 1)
Quarter: 2015Q3

REPORT INFORMATION
  Report Type: Spontaneous
  Country: US (occurrence: None)
  Receive Date: 20150812
  Receipt Date: 20150812
  Transmission Date: 20151125
  Serious: Yes (Death, Life-Threatening, Hospitalization, Disabling, Other)
  Sender: FDA-Public Use
  Company Number: None

PATIENT
  Age: 36 Year
  Sex: Female
  Weight: 62.6 kg

DRUGS (4)
  1. MULTIVITAMIN WITH IRON [Concomitant]
     Active Substance: IRON\VITAMINS
  2. PREMARIN HORMONE [Concomitant]
  3. LUPRON [Suspect]
     Active Substance: LEUPROLIDE ACETATE
     Indication: UTERINE NEOPLASM
     Dosage: 3.75?INJECTION?8 MONTH (EVERY MONTH (6)?INJECTION IM-RT LT GLUTEAL
     Route: 030
     Dates: start: 19950408, end: 19950909
  4. SOOTHAWAY RINSE [Concomitant]

REACTIONS (3)
  - Endometriosis [None]
  - Product use issue [None]
  - Condition aggravated [None]

NARRATIVE: CASE EVENT DATE: 19950408
